FAERS Safety Report 25853709 (Version 1)
Quarter: 2025Q3

REPORT INFORMATION
  Report Type: Spontaneous
  Country: US (occurrence: US)
  Receive Date: 20250926
  Receipt Date: 20250926
  Transmission Date: 20251021
  Serious: Yes (Death)
  Sender: PARI RESPIRATORY EQUIPMENT
  Company Number: US-PARI RESPIRATORY EQUIPMENT, INC.-2025PAR00072

PATIENT
  Age: 3 Year
  Sex: Male

DRUGS (4)
  1. KITABIS PAK [Suspect]
     Active Substance: TOBRAMYCIN
     Indication: Tracheitis
     Dosage: 90 MG, 2X/DAY
     Dates: start: 202302
  2. KITABIS PAK [Suspect]
     Active Substance: TOBRAMYCIN
     Indication: Chronic respiratory failure
  3. KITABIS PAK [Suspect]
     Active Substance: TOBRAMYCIN
     Indication: Respiration abnormal
  4. KITABIS PAK [Suspect]
     Active Substance: TOBRAMYCIN
     Indication: Mechanical ventilation

REACTIONS (2)
  - Death [Fatal]
  - Off label use [Unknown]

NARRATIVE: CASE EVENT DATE: 20230201
